FAERS Safety Report 5087125-5 (Version None)
Quarter: 2006Q3

REPORT INFORMATION
  Report Type: 
  Country: None (occurrence: None)
  Receive Date: 20060821
  Receipt Date: 20060809
  Transmission Date: 20061208
  Serious: Yes (Hospitalization)
  Sender: FDA-Public Use
  Company Number: 2004105698

PATIENT
  Age: 75 Year
  Sex: Male

DRUGS (2)
  1. CELEBREX [Suspect]
     Indication: NEOPLASM PROPHYLAXIS
     Dosage: 400 MG (1 IN 1 D) ORAL
     Route: 048
     Dates: start: 20010630, end: 20040722
  2. GLUCOSAMINE [Concomitant]

REACTIONS (5)
  - ACUTE MYOCARDIAL INFARCTION [None]
  - COLON ADENOMA [None]
  - CORONARY ARTERY DISEASE [None]
  - RECTAL ADENOMA [None]
  - VENTRICULAR DYSFUNCTION [None]
